FAERS Safety Report 20862806 (Version 1)
Quarter: 2022Q2

REPORT INFORMATION
  Report Type: Spontaneous
  Country: US (occurrence: US)
  Receive Date: 20220523
  Receipt Date: 20220523
  Transmission Date: 20220720
  Serious: Yes (Other)
  Sender: FDA-Public Use
  Company Number: US-PFIZER INC-202200703279

PATIENT

DRUGS (1)
  1. ABROCITINIB [Suspect]
     Active Substance: ABROCITINIB
     Dosage: UNK

REACTIONS (4)
  - Ophthalmic herpes simplex [Unknown]
  - Eyelid rash [Unknown]
  - Rash [Unknown]
  - Abdominal distension [Unknown]
